FAERS Safety Report 4918320-0 (Version None)
Quarter: 2006Q1

REPORT INFORMATION
  Report Type: 
  Country: None (occurrence: None)
  Receive Date: 20060217
  Receipt Date: 20060217
  Transmission Date: 20060701
  Serious: Yes (Hospitalization)
  Sender: FDA-Public Use
  Company Number: None

PATIENT
  Age: 42 Year
  Sex: Female
  Weight: 110 kg

DRUGS (1)
  1. BYETTA [Suspect]

REACTIONS (4)
  - CARDIAC DISORDER [None]
  - MEDICATION ERROR [None]
  - OEDEMA PERIPHERAL [None]
  - WEIGHT INCREASED [None]
